FAERS Safety Report 9303198 (Version 1)
Quarter: 2013Q1

REPORT INFORMATION
  Report Type: Spontaneous
  Country: DK (occurrence: None)
  Receive Date: 20130116
  Receipt Date: 20130116
  Transmission Date: 20140127
  Serious: Yes (Other)
  Sender: FDA-Public Use
  Company Number: 2012MA013483

PATIENT
  Sex: Male

DRUGS (8)
  1. DOXYCYCLINE  HYCLATE  DELAYED-RELEASE  TABLETS  100MG  (BASE)  (AELLC)  (DOXYCYCLINE) [Suspect]
     Indication: URINARY TRACT INFECTION
     Dosage: ?11/--/2011  -
     Dates: start: 201111
  2. OMEPRAZOLE  (OMEPRAZOLE) [Suspect]
     Indication: ABDOMINAL PAIN
     Dosage: ?04/--/2012  -  10/--/2012
     Dates: start: 201204, end: 201210
  3. NITROFURANTOIN [Suspect]
     Indication: PRODUCT USED FOR UNKNOWN INDICATION
  4. SEROQUEL  (QUETIAPINE  FUMARATE) [Suspect]
     Indication: ANXIETY
  5. CIPROFLOXACIN  (CIPROFLOXACIN) [Suspect]
     Indication: PRODUCT USED FOR UNKNOWN INDICATION
     Dosage: ?06/--/2012  -
     Dates: start: 201206
  6. LAXIDO [Concomitant]
  7. TRIMETHOPRIM [Concomitant]
  8. ERYTHROMYCIN [Concomitant]

REACTIONS (30)
  - Gastric ulcer [None]
  - Gastrooesophageal reflux disease [None]
  - Tooth disorder [None]
  - Headache [None]
  - Hair colour changes [None]
  - Malaise [None]
  - Chromaturia [None]
  - Melanocytic naevus [None]
  - Skin exfoliation [None]
  - Alopecia [None]
  - Dehydration [None]
  - Pigmentation disorder [None]
  - Drug ineffective [None]
  - Photosensitivity reaction [None]
  - Gastrointestinal disorder [None]
  - Hormone level abnormal [None]
  - Drug hypersensitivity [None]
  - Gastrointestinal infection [None]
  - Pallor [None]
  - Skin discolouration [None]
  - Urinary tract infection [None]
  - Dermatitis [None]
  - Mass [None]
  - Abdominal pain [None]
  - Tendonitis [None]
  - Bone pain [None]
  - Dental caries [None]
  - Condition aggravated [None]
  - Protein total abnormal [None]
  - Skin disorder [None]
